FAERS Safety Report 24637232 (Version 3)
Quarter: 2024Q4

REPORT INFORMATION
  Report Type: Spontaneous
  Country: US (occurrence: US)
  Receive Date: 20241119
  Receipt Date: 20241209
  Transmission Date: 20250115
  Serious: Yes (Hospitalization, Other)
  Sender: PFIZER
  Company Number: US-PFIZER INC-202400301539

PATIENT
  Age: 75 Year
  Sex: Female

DRUGS (2)
  1. VYNDAMAX [Suspect]
     Active Substance: TAFAMIDIS
     Indication: Amyloidosis
     Dosage: TAKE 1 CAPSULE (61 MG) BY MOUTH DAILY
     Route: 048
  2. VYNDAMAX [Suspect]
     Active Substance: TAFAMIDIS
     Indication: Left ventricular failure
     Dosage: 61 MG, 1X/DAY
     Route: 048

REACTIONS (9)
  - Cardiac failure congestive [Unknown]
  - Pulmonary oedema [Recovering/Resolving]
  - Cardiac failure [Unknown]
  - Pneumonia [Unknown]
  - Fluid retention [Recovering/Resolving]
  - Cough [Recovering/Resolving]
  - Muscle spasms [Recovering/Resolving]
  - Gait disturbance [Recovering/Resolving]
  - Fatigue [Unknown]

NARRATIVE: CASE EVENT DATE: 20220101
